FAERS Safety Report 6920798-8 (Version None)
Quarter: 2010Q3

REPORT INFORMATION
  Report Type: 
  Country: None (occurrence: None)
  Receive Date: 20100812
  Receipt Date: 20100809
  Transmission Date: 20110219
  Serious: Yes (Hospitalization)
  Sender: FDA-Public Use
  Company Number: JP-BAYER-201014048BYL

PATIENT
  Age: 68 Year
  Sex: Female

DRUGS (6)
  1. AVELOX [Suspect]
     Indication: PRODUCT USED FOR UNKNOWN INDICATION
     Dosage: TOTAL DAILY DOSE: 400 MG  UNIT DOSE: 400 MG
     Route: 048
     Dates: start: 20100426, end: 20100509
  2. NAPA [Concomitant]
     Route: 048
  3. C CYSTEN [Concomitant]
     Dosage: UNIT DOSE: 50 %
     Route: 048
  4. ENTERONON R [Concomitant]
     Route: 048
  5. THEO-DUR [Concomitant]
     Dosage: UNIT DOSE: 20 %
     Route: 048
  6. TALION [Concomitant]
     Dosage: UNIT DOSE: 10 MG
     Route: 048

REACTIONS (1)
  - AGRANULOCYTOSIS [None]
